FAERS Safety Report 17964281 (Version 1)
Quarter: 2020Q2

REPORT INFORMATION
  Report Type: Spontaneous
  Country: DE (occurrence: DE)
  Receive Date: 20200630
  Receipt Date: 20200630
  Transmission Date: 20200714
  Serious: Yes (Other)
  Sender: FDA-Public Use
  Company Number: GXKR2017DE005545

PATIENT
  Age: 73 Year
  Sex: Female

DRUGS (1)
  1. ESTRAMON UNO [Suspect]
     Active Substance: ESTRADIOL
     Indication: PRODUCT USED FOR UNKNOWN INDICATION
     Dosage: 50 UG/24 HR WITH PATCH CHANGE ONCE WEEKLY
     Route: 062
     Dates: start: 201710

REACTIONS (6)
  - Alopecia [Unknown]
  - Ageusia [Unknown]
  - Weight increased [Unknown]
  - Urinary retention [Unknown]
  - Decreased appetite [Unknown]
  - Vision blurred [Unknown]
